FAERS Safety Report 5643894-4 (Version None)
Quarter: 2008Q1

REPORT INFORMATION
  Report Type: 
  Country: None (occurrence: None)
  Receive Date: 20080226
  Receipt Date: 20080212
  Transmission Date: 20080703
  Serious: Yes (Hospitalization)
  Sender: FDA-Public Use
  Company Number: 230554J08USA

PATIENT
  Age: 30 Year
  Sex: Female
  Weight: 81.6475 kg

DRUGS (4)
  1. REBIF [Suspect]
     Indication: MULTIPLE SCLEROSIS
     Dosage: 44 MCG, 3 IN 1 WEEKS, SUBCUTANEOUS
     Route: 058
     Dates: start: 20061229
  2. PERCOCET [Concomitant]
  3. ZANAFLEX [Concomitant]
  4. KLONOPIN [Concomitant]

REACTIONS (5)
  - APHASIA [None]
  - DYSARTHRIA [None]
  - EYE PAIN [None]
  - PAIN [None]
  - SOMNOLENCE [None]
